FAERS Safety Report 6262446-9 (Version None)
Quarter: 2009Q3

REPORT INFORMATION
  Report Type: 
  Country: None (occurrence: None)
  Receive Date: 20090709
  Receipt Date: 20090629
  Transmission Date: 20100115
  Serious: Yes (Other)
  Sender: FDA-Public Use
  Company Number: NL-BAXTER-2009BH010923

PATIENT

DRUGS (9)
  1. CYCLOPHOSPHAMIDE [Suspect]
     Indication: T-CELL LYMPHOMA
     Route: 065
  2. DOXORUBICIN HYDROCHLORIDE [Suspect]
     Indication: T-CELL LYMPHOMA
     Route: 065
  3. VINCRISTINE SULFATE GENERIC [Suspect]
     Indication: T-CELL LYMPHOMA
     Route: 065
  4. PREDNISONE [Suspect]
     Indication: T-CELL LYMPHOMA
     Route: 065
  5. ALEMTUZUMAB [Suspect]
     Indication: T-CELL LYMPHOMA
     Route: 058
  6. VALACYCLOVIR HCL [Concomitant]
     Indication: ANTIVIRAL PROPHYLAXIS
     Route: 065
  7. COTRIMOXAZOL ^ALIUD^ [Concomitant]
     Indication: ANTIFUNGAL PROPHYLAXIS
     Route: 065
  8. FLUCONAZOLE [Concomitant]
     Indication: ANTIFUNGAL PROPHYLAXIS
     Route: 065
  9. G-CSF [Concomitant]
     Indication: NEUTROPHIL COUNT DECREASED
     Route: 065

REACTIONS (1)
  - CYTOMEGALOVIRUS INFECTION [None]
